FAERS Safety Report 10350661 (Version 2)
Quarter: 2014Q3

REPORT INFORMATION
  Report Type: Spontaneous
  Country: US (occurrence: US)
  Receive Date: 20140730
  Receipt Date: 20140730
  Transmission Date: 20150326
  Serious: Yes (Hospitalization, Disabling, Other)
  Sender: FDA-Public Use
  Company Number: US-009507513-2010SP062586

PATIENT
  Sex: Female
  Weight: 106.6 kg

DRUGS (3)
  1. NUVARING [Suspect]
     Active Substance: ETHINYL ESTRADIOL\ETONOGESTREL
     Dosage: UNK
     Route: 067
     Dates: start: 200609, end: 200610
  2. NUVARING [Suspect]
     Active Substance: ETHINYL ESTRADIOL\ETONOGESTREL
     Indication: CONTRACEPTION
     Dosage: UNK
     Dates: start: 200603, end: 200611
  3. NUVARING [Suspect]
     Active Substance: ETHINYL ESTRADIOL\ETONOGESTREL
     Dosage: UNK
     Route: 067
     Dates: start: 200611, end: 20061201

REACTIONS (7)
  - Hypercoagulation [Unknown]
  - Pulmonary mass [Unknown]
  - Pulmonary embolism [Recovered/Resolved]
  - Oedema [Unknown]
  - Muscle spasms [Recovered/Resolved]
  - Hypertension [Unknown]
  - Deep vein thrombosis [Recovered/Resolved]

NARRATIVE: CASE EVENT DATE: 200610
